FAERS Safety Report 12941979 (Version 1)
Quarter: 2016Q4

REPORT INFORMATION
  Report Type: Spontaneous
  Country: US (occurrence: US)
  Receive Date: 20161114
  Receipt Date: 20161114
  Transmission Date: 20170207
  Serious: No
  Sender: FDA-Public Use
  Company Number: US-ASTRAZENECA-2016SF15704

PATIENT
  Sex: Male

DRUGS (3)
  1. OXYCODONE [Concomitant]
     Active Substance: OXYCODONE
  2. MOVANTIK [Suspect]
     Active Substance: NALOXEGOL OXALATE
     Route: 048
  3. MOVANTIK [Suspect]
     Active Substance: NALOXEGOL OXALATE
     Dosage: SOMETIMES TAKES AN ADDITIONAL HALF OF A MOVANTIK 12.5MG
     Route: 048

REACTIONS (4)
  - Gastrointestinal motility disorder [Unknown]
  - Drug ineffective [Unknown]
  - Salivary hypersecretion [Unknown]
  - Intentional product use issue [Unknown]
